FAERS Safety Report 5190283-5 (Version None)
Quarter: 2006Q4

REPORT INFORMATION
  Report Type: 
  Country: None (occurrence: None)
  Receive Date: 20061222
  Receipt Date: 20060406
  Transmission Date: 20070319
  Serious: No
  Sender: FDA-Public Use
  Company Number: US-AMGEN-US175262

PATIENT
  Sex: Female

DRUGS (7)
  1. ARANESP [Suspect]
     Indication: DIALYSIS
     Route: 065
     Dates: start: 20060301
  2. COUMADIN [Concomitant]
     Route: 065
  3. PREVACID [Concomitant]
     Route: 065
  4. VITAMIN B-12 [Concomitant]
     Route: 030
  5. NITROGLYCERIN [Concomitant]
     Route: 065
  6. MACROBID [Concomitant]
     Route: 065
  7. LEVSIN [Concomitant]
     Route: 065

REACTIONS (1)
  - INTERNATIONAL NORMALISED RATIO INCREASED [None]
